FAERS Safety Report 22530430 (Version 1)
Quarter: 2023Q2

REPORT INFORMATION
  Report Type: Report from Study
  Country: US (occurrence: None)
  Receive Date: 20230607
  Receipt Date: 20230607
  Transmission Date: 20230722
  Serious: Yes (Other)
  Sender: FDA-Public Use
  Company Number: 2023A127175

PATIENT

DRUGS (3)
  1. DAPAGLIFLOZIN [Suspect]
     Active Substance: DAPAGLIFLOZIN
     Indication: Adenocarcinoma pancreas
     Dosage: 5 MG ONCE DAILY FOR THE FIRST 2 WEEKS AND ESCALATED TO 10 MG ONCE DAILY AFTER ASSESSMENT BY AN EN...
     Route: 048
  2. PACLITAXEL [Suspect]
     Active Substance: PACLITAXEL
     Indication: Adenocarcinoma pancreas
     Dosage: 125 MG/M2 RESPECTIVELY, ON DAYS 1, 8, AND 15 OF EVERY 28-DAY CYCLE
     Route: 042
  3. GEMCITABINE [Suspect]
     Active Substance: GEMCITABINE
     Indication: Adenocarcinoma pancreas
     Dosage: 1000 MG/M2 RESPECTIVELY, ON DAYS 1, 8, AND 15 OF EVERY 28-DAY CYCLE

REACTIONS (3)
  - Urine ketone body present [Unknown]
  - Nausea [Unknown]
  - Vomiting [Unknown]
